FAERS Safety Report 6166152-0 (Version None)
Quarter: 2009Q2

REPORT INFORMATION
  Report Type: 
  Country: None (occurrence: None)
  Receive Date: 20090422
  Receipt Date: 20090413
  Transmission Date: 20091009
  Serious: Yes (Disabling)
  Sender: FDA-Public Use
  Company Number: 2009US001096

PATIENT
  Age: 62 Year
  Sex: Male

DRUGS (6)
  1. PROGRAF [Suspect]
     Indication: LIVER TRANSPLANT
     Dosage: 0.5 MG, UID/QD
     Dates: start: 20070801
  2. PROCRIT [Suspect]
     Indication: ANAEMIA
     Dosage: 40000 IU, WEEKLY, SUBCUTANEOUS; 80000 IU, WEEKLY
     Route: 058
     Dates: start: 20080507, end: 20090201
  3. PROCRIT [Suspect]
     Indication: ANAEMIA
     Dosage: 40000 IU, WEEKLY, SUBCUTANEOUS; 80000 IU, WEEKLY
     Route: 058
     Dates: start: 20081001
  4. PEGASYS [Suspect]
     Indication: HEPATITIS C
     Dates: start: 20080307, end: 20090130
  5. RIBAVIRIN [Suspect]
     Indication: HEPATITIS C
     Dates: start: 20080307, end: 20090130
  6. CELLCEPT [Suspect]
     Indication: IMMUNOSUPPRESSION
     Dosage: 1 DF, UID/QD

REACTIONS (2)
  - DRUG INTERACTION [None]
  - THERAPEUTIC RESPONSE DECREASED [None]
